FAERS Safety Report 19702232 (Version 2)
Quarter: 2021Q3

REPORT INFORMATION
  Report Type: Spontaneous
  Country: CA (occurrence: CA)
  Receive Date: 20210814
  Receipt Date: 20210911
  Transmission Date: 20211014
  Serious: Yes (Hospitalization, Other)
  Sender: FDA-Public Use
  Company Number: CA-TEVA-2021-CA-1936225

PATIENT
  Age: 67 Year
  Sex: Female

DRUGS (1)
  1. TEVA ETOPOSIDE [Suspect]
     Active Substance: ETOPOSIDE
     Indication: SMALL CELL LUNG CANCER
     Dosage: DOSE : 155 MG, STOPPED IN CYCLE 3.
     Dates: start: 20210325, end: 20210604

REACTIONS (4)
  - Acute myocardial infarction [Recovering/Resolving]
  - Acute coronary syndrome [Unknown]
  - Lung disorder [Unknown]
  - Cardiac disorder [Unknown]

NARRATIVE: CASE EVENT DATE: 2021
